FAERS Safety Report 13246156 (Version 1)
Quarter: 2017Q1

REPORT INFORMATION
  Report Type: Spontaneous
  Country: CN (occurrence: CN)
  Receive Date: 20170217
  Receipt Date: 20170217
  Transmission Date: 20170428
  Serious: Yes (Hospitalization, Other)
  Sender: FDA-Public Use
  Company Number: CN-JNJFOC-20170127654

PATIENT
  Age: 50 Year
  Sex: Male
  Weight: 65 kg

DRUGS (8)
  1. CETIRIZINE HYDROCHLORIDE. [Suspect]
     Active Substance: CETIRIZINE HYDROCHLORIDE
     Indication: VULVAR EROSION
     Route: 048
     Dates: start: 20161005
  2. CHLORPHENAMINE MALEATE [Suspect]
     Active Substance: CHLORPHENIRAMINE MALEATE
     Indication: VULVOVAGINAL ERYTHEMA
     Route: 048
     Dates: start: 20161005
  3. CETIRIZINE HYDROCHLORIDE. [Suspect]
     Active Substance: CETIRIZINE HYDROCHLORIDE
     Indication: PRURITUS
     Route: 048
     Dates: start: 20161005
  4. FENBID [Suspect]
     Active Substance: IBUPROFEN
     Indication: INTERVERTEBRAL DISC PROTRUSION
     Route: 048
     Dates: start: 20160915, end: 20161017
  5. AMMONIUM GLYCYRRHIZINATE [Suspect]
     Active Substance: AMMONIUM GLYCYRRHIZATE
     Indication: MACULE
     Route: 065
  6. CETIRIZINE HYDROCHLORIDE. [Suspect]
     Active Substance: CETIRIZINE HYDROCHLORIDE
     Indication: VULVOVAGINAL ERYTHEMA
     Route: 048
     Dates: start: 20161005
  7. CHLORPHENAMINE MALEATE [Suspect]
     Active Substance: CHLORPHENIRAMINE MALEATE
     Indication: VULVAR EROSION
     Route: 048
     Dates: start: 20161005
  8. CHLORPHENAMINE MALEATE [Suspect]
     Active Substance: CHLORPHENIRAMINE MALEATE
     Indication: PRURITUS
     Route: 048
     Dates: start: 20161005

REACTIONS (14)
  - Erythema [Recovering/Resolving]
  - Stomatitis [Recovering/Resolving]
  - Macule [Recovering/Resolving]
  - Rash [Recovering/Resolving]
  - Oral mucosal eruption [Recovering/Resolving]
  - Pain [Recovering/Resolving]
  - Vulvitis [Recovering/Resolving]
  - Purulent discharge [Recovered/Resolved]
  - Product use issue [Recovering/Resolving]
  - Papule [Recovering/Resolving]
  - Blister [Recovering/Resolving]
  - Off label use [Recovering/Resolving]
  - Dermatitis exfoliative [Recovering/Resolving]
  - Oral mucosa erosion [Recovering/Resolving]

NARRATIVE: CASE EVENT DATE: 20161005
